FAERS Safety Report 21411362 (Version 5)
Quarter: 2024Q1

REPORT INFORMATION
  Report Type: Spontaneous
  Country: US (occurrence: US)
  Receive Date: 20221005
  Receipt Date: 20240228
  Transmission Date: 20240410
  Serious: Yes (Other)
  Sender: FDA-Public Use
  Company Number: US-PFIZER INC-PV202200076692

PATIENT
  Age: 72 Year
  Sex: Female

DRUGS (2)
  1. IBRANCE [Suspect]
     Active Substance: PALBOCICLIB
     Indication: Neoplasm malignant
     Dosage: 125 MG
  2. IBRANCE [Suspect]
     Active Substance: PALBOCICLIB
     Indication: Hormone receptor positive HER2 negative breast cancer
     Dosage: TAKE 1 TABLET. (125 MG) BY MOUTH DAILY. TAKE FOR 21 DAYS FOLLOWED BY 7 DAYS OFF
     Route: 048

REACTIONS (3)
  - Compression fracture [Unknown]
  - Neoplasm progression [Unknown]
  - Malaise [Unknown]
